FAERS Safety Report 8737850 (Version 3)
Quarter: 2013Q4

REPORT INFORMATION
  Report Type: Spontaneous
  Country: FR (occurrence: FR)
  Receive Date: 20120822
  Receipt Date: 20131105
  Transmission Date: 20140711
  Serious: Yes (Death, Hospitalization, Other)
  Sender: FDA-Public Use
  Company Number: FR-009507513-1208FRA004386

PATIENT
  Age: 54 Year
  Sex: Male

DRUGS (11)
  1. ISENTRESS [Suspect]
     Indication: HIV INFECTION
     Dosage: 400 MG, BID
     Route: 048
     Dates: start: 20110527, end: 201106
  2. VIREAD [Suspect]
     Indication: HIV INFECTION
     Dosage: UNK
     Route: 048
     Dates: end: 20110527
  3. VIDEX [Suspect]
     Dosage: UNK
     Route: 048
     Dates: end: 20110527
  4. INTELENCE [Suspect]
     Dosage: 200 MG, BID
     Route: 048
  5. PREZISTA [Suspect]
     Dosage: 400 MG, BID
     Route: 048
     Dates: end: 201106
  6. NORVIR [Suspect]
     Dosage: UNK
     Route: 048
     Dates: end: 201106
  7. KARDEGIC [Concomitant]
  8. MOPRAL (OMEPRAZOLE) [Concomitant]
  9. CLOMIPRAMINE HYDROCHLORIDE [Concomitant]
  10. CRESTOR [Concomitant]
  11. [COMPOSITION UNSPECIFIED] [Concomitant]

REACTIONS (2)
  - Renal failure acute [Fatal]
  - Fanconi syndrome [Fatal]
